FAERS Safety Report 5107695-8 (Version None)
Quarter: 2006Q3

REPORT INFORMATION
  Report Type: 
  Country: None (occurrence: None)
  Receive Date: 20060919
  Receipt Date: 20060831
  Transmission Date: 20061208
  Serious: Yes (Death)
  Sender: FDA-Public Use
  Company Number: JP-AVENTIS-200612711JP

PATIENT
  Age: 75 Year
  Sex: Male
  Weight: 56.8 kg

DRUGS (9)
  1. TAXOTERE [Suspect]
     Indication: NON-SMALL CELL LUNG CANCER
     Route: 041
     Dates: start: 20060728, end: 20060728
  2. LOXOPROFEN [Concomitant]
     Indication: LUNG NEOPLASM MALIGNANT
     Route: 048
     Dates: start: 20060720, end: 20060830
  3. REBAMIPIDE [Concomitant]
     Indication: ULCER
     Route: 048
     Dates: start: 20060720, end: 20060830
  4. RIZE [Concomitant]
     Indication: ANXIETY DISORDER
     Route: 048
     Dates: end: 20060824
  5. MEXITIL [Concomitant]
     Indication: ARRHYTHMIA
     Route: 048
     Dates: end: 20060830
  6. ADONA [Concomitant]
     Indication: LUNG NEOPLASM MALIGNANT
     Route: 048
     Dates: start: 20060802, end: 20060808
  7. GASTER [Concomitant]
     Indication: ABDOMINAL PAIN UPPER
     Route: 048
     Dates: start: 20060807, end: 20060830
  8. KYTRIL [Concomitant]
     Indication: VOMITING
     Route: 041
     Dates: start: 20060728, end: 20060728
  9. DECADRON [Concomitant]
     Indication: OEDEMA
     Route: 041
     Dates: start: 20060728, end: 20060728

REACTIONS (2)
  - INTERSTITIAL LUNG DISEASE [None]
  - LUNG DISORDER [None]
